FAERS Safety Report 7304620-6 (Version None)
Quarter: 2011Q1

REPORT INFORMATION
  Report Type: 
  Country: None (occurrence: None)
  Receive Date: 20110222
  Receipt Date: 20110119
  Transmission Date: 20110831
  Serious: Yes (Hospitalization)
  Sender: FDA-Public Use
  Company Number: US-BIOGENIDEC-2010BI044684

PATIENT
  Age: 59 Year
  Sex: Male

DRUGS (2)
  1. TYSABRI [Suspect]
     Indication: MULTIPLE SCLEROSIS
     Route: 042
     Dates: start: 20081104, end: 20100401
  2. TYSABRI [Suspect]
     Route: 042
     Dates: start: 20070927, end: 20081002

REACTIONS (3)
  - MOBILITY DECREASED [None]
  - INFECTION [None]
  - T-LYMPHOCYTE COUNT ABNORMAL [None]
